FAERS Safety Report 4809560-X (Version None)
Quarter: 2005Q4

REPORT INFORMATION
  Report Type: 
  Country: None (occurrence: None)
  Receive Date: 20051021
  Receipt Date: 20051011
  Transmission Date: 20060501
  Serious: Yes (Death, Hospitalization, Other)
  Sender: FDA-Public Use
  Company Number: 2005BI015137

PATIENT
  Age: 47 Year
  Sex: Female

DRUGS (4)
  1. AVONEX [Suspect]
     Indication: MULTIPLE SCLEROSIS
     Dosage: IM
     Route: 030
     Dates: start: 19990101, end: 20030401
  2. LIPITOR [Concomitant]
  3. COUMADIN [Concomitant]
  4. NEURONTIN [Concomitant]

REACTIONS (3)
  - COMA [None]
  - CONVULSION [None]
  - MYOCARDIAL INFARCTION [None]
